FAERS Safety Report 18850636 (Version 1)
Quarter: 2021Q1

REPORT INFORMATION
  Report Type: Spontaneous
  Country: US (occurrence: US)
  Receive Date: 20210205
  Receipt Date: 20210205
  Transmission Date: 20210420
  Serious: No
  Sender: FDA-Public Use
  Company Number: US-BIOGEN-2016BI00336280

PATIENT
  Sex: Female

DRUGS (1)
  1. TECFIDERA [Suspect]
     Active Substance: DIMETHYL FUMARATE
     Indication: MULTIPLE SCLEROSIS
     Route: 048
     Dates: start: 2013

REACTIONS (5)
  - Central nervous system lesion [Unknown]
  - Product dose omission in error [Unknown]
  - Hot flush [Unknown]
  - Abdominal pain upper [Recovered/Resolved]
  - White blood cell count decreased [Not Recovered/Not Resolved]
